FAERS Safety Report 5430507-X (Version None)
Quarter: 2007Q3

REPORT INFORMATION
  Report Type: 
  Country: None (occurrence: None)
  Receive Date: 20070828
  Receipt Date: 20070813
  Transmission Date: 20080115
  Serious: Yes (Other)
  Sender: FDA-Public Use
  Company Number: 2007RR-09329

PATIENT
  Age: 67 Year
  Sex: Female

DRUGS (5)
  1. CLARITHROMYCIN [Suspect]
     Indication: SKIN INFECTION
     Dosage: 500 MG, ORAL
     Route: 048
  2. IRON SULPHATE (IRON SULPHATE) [Suspect]
     Indication: IRON DEFICIENCY
     Dosage: 400 MG
  3. AZATHIOPRINE [Concomitant]
  4. CO-PROXAMOL (CO-PROXAMOL) [Concomitant]
  5. OMEPRAZOLE [Concomitant]

REACTIONS (1)
  - AGRANULOCYTOSIS [None]
